FAERS Safety Report 24142620 (Version 1)
Quarter: 2024Q3

REPORT INFORMATION
  Report Type: Report from Study
  Country: US (occurrence: US)
  Receive Date: 20240726
  Receipt Date: 20240726
  Transmission Date: 20241016
  Serious: Yes (Other)
  Sender: AKEBIA THERAPEUTICS
  Company Number: US-KERYX BIOPHARMACEUTICALS INC.-US-AKEB-24-001109

PATIENT
  Sex: Male

DRUGS (1)
  1. AURYXIA [Suspect]
     Active Substance: TETRAFERRIC TRICITRATE DECAHYDRATE
     Indication: Hyperphosphataemia
     Dosage: 8 DOSAGE FORM, QD
     Route: 048

REACTIONS (2)
  - Blindness unilateral [Unknown]
  - Hypoacusis [Unknown]
